FAERS Safety Report 5040706-7 (Version None)
Quarter: 2006Q2

REPORT INFORMATION
  Report Type: 
  Country: None (occurrence: None)
  Receive Date: 20060629
  Receipt Date: 20060629
  Transmission Date: 20061013
  Serious: Yes (Life-Threatening, Hospitalization, Other)
  Sender: FDA-Public Use
  Company Number: None

PATIENT
  Sex: Female
  Weight: 72.5755 kg

DRUGS (1)
  1. ORTHO EVRA [Suspect]
     Dosage: 1 PATCH 1 PATCH/WEEK TRANSDERMAL
     Route: 062
     Dates: start: 20050211, end: 20060310

REACTIONS (1)
  - CEREBROVASCULAR ACCIDENT [None]
